FAERS Safety Report 5199548-4 (Version None)
Quarter: 2006Q4

REPORT INFORMATION
  Report Type: 
  Country: None (occurrence: None)
  Receive Date: 20061229
  Receipt Date: 20061219
  Transmission Date: 20070319
  Serious: Yes (Death, Other)
  Sender: FDA-Public Use
  Company Number: 2006RR-04997

PATIENT
  Age: 70 Year
  Sex: Female

DRUGS (6)
  1. IBUPROFEN [Suspect]
     Dosage: 600 MG, UNK, ORAL
     Route: 048
     Dates: start: 20060313, end: 20060313
  2. AMITRIPTYLINE HCL [Concomitant]
  3. AMLODIPINE MALEATE (AMLODIPINE) [Concomitant]
  4. BECOTIDE [Concomitant]
  5. SALBUTAMOL (SALBUTAMOL) [Concomitant]
  6. SIMVASTATIN [Concomitant]

REACTIONS (1)
  - DEATH [None]
